FAERS Safety Report 13637597 (Version 1)
Quarter: 2017Q2

REPORT INFORMATION
  Report Type: Spontaneous
  Country: US (occurrence: US)
  Receive Date: 20170608
  Receipt Date: 20170608
  Transmission Date: 20170830
  Serious: Yes (Other)
  Sender: FDA-Public Use
  Company Number: None

PATIENT
  Age: 72 Year
  Sex: Male

DRUGS (2)
  1. SUTENT [Suspect]
     Active Substance: SUNITINIB MALATE
     Indication: RENAL CANCER
     Dosage: 25MG DAILY 4 WKS ON, 2 WKS OFF, ORAL
     Route: 048
     Dates: start: 20170420, end: 20170510
  2. SUTENT [Suspect]
     Active Substance: SUNITINIB MALATE
     Indication: RENAL CANCER
     Dosage: 37.5MG DAILY 4 WKS ON, 2 WKS OFF ORAL
     Route: 048
     Dates: start: 20161008

REACTIONS (6)
  - Vomiting [None]
  - Nausea [None]
  - Diarrhoea [None]
  - Decreased appetite [None]
  - Therapy change [None]
  - Therapy cessation [None]
